FAERS Safety Report 16109145 (Version 1)
Quarter: 2019Q1

REPORT INFORMATION
  Report Type: Spontaneous
  Country: US (occurrence: US)
  Receive Date: 20190323
  Receipt Date: 20190323
  Transmission Date: 20190418
  Serious: No
  Sender: FDA-Public Use
  Company Number: US-THERAPEUTICSMD-2019TMD00199

PATIENT
  Sex: Female

DRUGS (4)
  1. IMVEXXY [Suspect]
     Active Substance: ESTRADIOL
     Dosage: UNK UNK, 2X/WEEK
     Dates: start: 20190209
  2. UNSPECIFIED ESTRADIOL PATCH [Concomitant]
     Dosage: UNK
     Route: 067
  3. UNSPECIFIED ASTHMA INHALER [Concomitant]
  4. IMVEXXY [Suspect]
     Active Substance: ESTRADIOL
     Dosage: UNK

REACTIONS (3)
  - Intentional product misuse [Not Recovered/Not Resolved]
  - Headache [Recovered/Resolved]
  - Asthma [Recovered/Resolved]

NARRATIVE: CASE EVENT DATE: 201902
